FAERS Safety Report 5618952-0 (Version None)
Quarter: 2008Q1

REPORT INFORMATION
  Report Type: 
  Country: None (occurrence: None)
  Receive Date: 20080114
  Receipt Date: 20071115
  Transmission Date: 20080703
  Serious: Yes (Other)
  Sender: FDA-Public Use
  Company Number: 2007096853

PATIENT
  Age: 21 Year
  Sex: Female
  Weight: 81 kg

DRUGS (5)
  1. DEPO-SUBQ PROVERA 104 [Suspect]
     Indication: CONTRACEPTION
     Dosage: SEE IMAGE
     Route: 058
     Dates: start: 20060831, end: 20060831
  2. DEPO-SUBQ PROVERA 104 [Suspect]
     Indication: CONTRACEPTION
     Dosage: SEE IMAGE
     Route: 058
     Dates: start: 20061121, end: 20061121
  3. DEPO-SUBQ PROVERA 104 [Suspect]
     Indication: CONTRACEPTION
     Dosage: SEE IMAGE
     Route: 058
     Dates: start: 20070215, end: 20070215
  4. DEPO-SUBQ PROVERA 104 [Suspect]
     Indication: CONTRACEPTION
     Dosage: SEE IMAGE
     Route: 058
     Dates: start: 20070510, end: 20070510
  5. DEPO-SUBQ PROVERA 104 [Suspect]
     Indication: CONTRACEPTION
     Dosage: SEE IMAGE
     Route: 058
     Dates: start: 20070726, end: 20070726

REACTIONS (1)
  - INJECTION SITE REACTION [None]
